FAERS Safety Report 4408474-7 (Version None)
Quarter: 2004Q3

REPORT INFORMATION
  Report Type: 
  Country: None (occurrence: None)
  Receive Date: 20040721
  Receipt Date: 20040604
  Transmission Date: 20050211
  Serious: Yes (Death, Life-Threatening, Hospitalization)
  Sender: FDA-Public Use
  Company Number: PAGL/04/01/USA

PATIENT
  Age: 86 Year
  Sex: Male
  Weight: 80 kg

DRUGS (17)
  1. PANGLOBULIN [Suspect]
     Indication: THROMBOCYTOPENIA
     Dosage: 84 G, O.A.D., I.V.
     Route: 042
     Dates: start: 20040511, end: 20040512
  2. ASCORBIC ACID [Concomitant]
  3. CARVEDILOL [Concomitant]
  4. DIGOXIN [Concomitant]
  5. DOCUSATE (DOCUSATE) [Concomitant]
  6. ENOXAPARIN (HEPARIN FRACTION) [Concomitant]
  7. ESCITALOPRAM (SSRI) [Concomitant]
  8. FUROSEMIDE [Concomitant]
  9. FFEROUS SULFATE (FERROUS SULFATE) [Concomitant]
  10. FAMOTIDINE [Concomitant]
  11. FOLIC ACID [Concomitant]
  12. LACTULOSE [Concomitant]
  13. LISINOPRIL [Concomitant]
  14. OLANZAPINE [Concomitant]
  15. MVI (MULTIVITAMINS) [Concomitant]
  16. SIMVASTATIN [Concomitant]
  17. THIAMINE (THIAMINE) [Concomitant]

REACTIONS (2)
  - EJECTION FRACTION DECREASED [None]
  - RENAL FAILURE ACUTE [None]
